FAERS Safety Report 7606539-X (Version None)
Quarter: 2011Q3

REPORT INFORMATION
  Report Type: 
  Country: None (occurrence: None)
  Receive Date: 20110713
  Receipt Date: 20110711
  Transmission Date: 20111222
  Serious: Yes (Hospitalization, Other)
  Sender: FDA-Public Use
  Company Number: US-TEVA-289979USA

PATIENT
  Age: 51 Year
  Sex: Male

DRUGS (3)
  1. ACETAMINOPHEN AND OXYCODONE HCL [Suspect]
     Indication: PAIN
     Dosage: UP TO 12 TIMES A DAY
  2. VARENICLINE [Suspect]
     Dosage: .5 MILLIGRAM;
  3. DIAZEPAM [Concomitant]

REACTIONS (5)
  - MANIA [None]
  - DIARRHOEA [None]
  - DRUG WITHDRAWAL SYNDROME [None]
  - CHILLS [None]
  - DEPRESSION [None]
